FAERS Safety Report 19861270 (Version 2)
Quarter: 2021Q4

REPORT INFORMATION
  Report Type: Spontaneous
  Country: US (occurrence: US)
  Receive Date: 20210921
  Receipt Date: 20211019
  Transmission Date: 20220303
  Serious: No
  Sender: FDA-Public Use
  Company Number: US-PFIZER INC-202101099325

PATIENT
  Age: 15 Year
  Sex: Male
  Weight: 60.33 kg

DRUGS (1)
  1. GENOTROPIN [Suspect]
     Active Substance: SOMATROPIN
     Indication: Growth hormone deficiency
     Dosage: 2.6 MG, 1X/DAY (2.6MG ONCE A DAY AT NIGHT INJECTION)
     Dates: start: 2020

REACTIONS (3)
  - Therapeutic product effect incomplete [Unknown]
  - Device physical property issue [Unknown]
  - Device leakage [Unknown]

NARRATIVE: CASE EVENT DATE: 20200501
